FAERS Safety Report 9264262 (Version 2)
Quarter: 2013Q2

REPORT INFORMATION
  Report Type: Spontaneous
  Country: BR (occurrence: BR)
  Receive Date: 20130430
  Receipt Date: 20130528
  Transmission Date: 20140414
  Serious: Yes (Hospitalization, Other)
  Sender: FDA-Public Use
  Company Number: PHHY2013BR042201

PATIENT
  Age: 3 Year
  Sex: Female
  Weight: 14 kg

DRUGS (1)
  1. AMOXICILLIN TRIHYDRATE+POTASSIUM CLAVULANATE SANDOZ [Suspect]
     Indication: SINUSITIS
     Dosage: 4 ML, BID
     Route: 048
     Dates: start: 20130407, end: 20130408

REACTIONS (2)
  - Vomiting [Recovered/Resolved]
  - Aphagia [Recovered/Resolved]
